FAERS Safety Report 10486064 (Version 1)
Quarter: 2014Q4

REPORT INFORMATION
  Report Type: Spontaneous
  Country: US (occurrence: US)
  Receive Date: 20141001
  Receipt Date: 20141001
  Transmission Date: 20150528
  Serious: No
  Sender: FDA-Public Use
  Company Number: US-009507513-1409USA009244

PATIENT
  Sex: Male

DRUGS (1)
  1. ASMANEX [Suspect]
     Active Substance: MOMETASONE FUROATE
     Dosage: 1 DF (PUFF), QD(ONCE DAILY)
     Route: 055
     Dates: start: 2012

REACTIONS (2)
  - Rash [Not Recovered/Not Resolved]
  - Poor quality drug administered [Unknown]
